FAERS Safety Report 25334107 (Version 1)
Quarter: 2025Q2

REPORT INFORMATION
  Report Type: Spontaneous
  Country: US (occurrence: US)
  Receive Date: 20250520
  Receipt Date: 20250520
  Transmission Date: 20250716
  Serious: No
  Sender: HIKMA
  Company Number: HIKM2403424

PATIENT
  Age: 35 Year
  Sex: Male
  Weight: 106.58 kg

DRUGS (2)
  1. TESTOSTERONE CYPIONATE [Suspect]
     Active Substance: TESTOSTERONE CYPIONATE
     Indication: Secondary hypogonadism
     Route: 065
     Dates: start: 2016
  2. ARIMIDEX [Concomitant]
     Active Substance: ANASTROZOLE
     Indication: Hormone therapy
     Dosage: 0.3 MILLIGRAM, TIW
     Route: 065
     Dates: start: 2017

REACTIONS (3)
  - Injury [Recovered/Resolved]
  - Haemorrhage [Recovered/Resolved]
  - Product dose omission issue [Unknown]

NARRATIVE: CASE EVENT DATE: 20240505
